FAERS Safety Report 25523914 (Version 3)
Quarter: 2025Q3

REPORT INFORMATION
  Report Type: Spontaneous
  Country: US (occurrence: US)
  Receive Date: 20250707
  Receipt Date: 20250804
  Transmission Date: 20251021
  Serious: Yes (Other)
  Sender: HETERO
  Company Number: US-HETERO-HET2025US03548

PATIENT
  Age: 67 Year
  Sex: Male
  Weight: 87.996 kg

DRUGS (4)
  1. DABIGATRAN ETEXILATE [Suspect]
     Active Substance: DABIGATRAN ETEXILATE
     Indication: Deep vein thrombosis
     Route: 048
     Dates: start: 20250606
  2. SERTRALINE [Concomitant]
     Active Substance: SERTRALINE HYDROCHLORIDE
     Indication: Depression
     Route: 065
  3. XANAX [Concomitant]
     Active Substance: ALPRAZOLAM
     Indication: Anxiety
     Route: 065
  4. METOPROLOL TARTRATE [Concomitant]
     Active Substance: METOPROLOL TARTRATE
     Indication: Hypertension
     Route: 065

REACTIONS (6)
  - Seizure [Not Recovered/Not Resolved]
  - Depression [Not Recovered/Not Resolved]
  - Brain fog [Not Recovered/Not Resolved]
  - Memory impairment [Not Recovered/Not Resolved]
  - Micturition urgency [Not Recovered/Not Resolved]
  - Vision blurred [Not Recovered/Not Resolved]
